FAERS Safety Report 7235033-3 (Version None)
Quarter: 2011Q1

REPORT INFORMATION
  Report Type: 
  Country: None (occurrence: None)
  Receive Date: 20110120
  Receipt Date: 20110111
  Transmission Date: 20110831
  Serious: Yes (Other)
  Sender: FDA-Public Use
  Company Number: JP-JNJFOC-20110103395

PATIENT
  Age: 6 Decade
  Sex: Male

DRUGS (3)
  1. CHINESE HERBAL MEDICINE [Concomitant]
     Route: 065
  2. RISPERDAL [Suspect]
     Indication: ILL-DEFINED DISORDER
     Route: 048
  3. RISPERDAL CONSTA [Concomitant]
     Route: 030

REACTIONS (7)
  - FEELING COLD [None]
  - BEDRIDDEN [None]
  - FAECAL INCONTINENCE [None]
  - DIARRHOEA [None]
  - FREQUENT BOWEL MOVEMENTS [None]
  - POLLAKIURIA [None]
  - HYPOAESTHESIA [None]
